FAERS Safety Report 5793554-4 (Version None)
Quarter: 2008Q2

REPORT INFORMATION
  Report Type: 
  Country: None (occurrence: None)
  Receive Date: 20080627
  Receipt Date: 20080617
  Transmission Date: 20081010
  Serious: Yes (Other)
  Sender: FDA-Public Use
  Company Number: US-JNJFOC-20080604683

PATIENT
  Age: 46 Year
  Sex: Male
  Weight: 68.04 kg

DRUGS (2)
  1. TYLENOL (CAPLET) [Suspect]
     Route: 055
  2. TYLENOL (CAPLET) [Suspect]
     Indication: INTENTIONAL DRUG MISUSE
     Dosage: APPROXIMATELY 20 ACETAMINOPHEN CAPLETS/DAY
     Route: 055

REACTIONS (2)
  - DRUG ABUSE [None]
  - WRONG TECHNIQUE IN DRUG USAGE PROCESS [None]
